FAERS Safety Report 19515436 (Version 1)
Quarter: 2021Q3

REPORT INFORMATION
  Report Type: Spontaneous
  Country: US (occurrence: US)
  Receive Date: 20210709
  Receipt Date: 20210709
  Transmission Date: 20211014
  Serious: Yes (Disabling, Other)
  Sender: FDA-Public Use
  Company Number: US-REGENERON PHARMACEUTICALS, INC.-2021-65025

PATIENT

DRUGS (1)
  1. EYLEA [Suspect]
     Active Substance: AFLIBERCEPT
     Indication: MACULAR DEGENERATION
     Dosage: LEFT EYE
     Route: 031
     Dates: start: 20210628

REACTIONS (5)
  - Blindness [Unknown]
  - Eye pain [Recovering/Resolving]
  - Corneal abrasion [Unknown]
  - Conjunctivitis [Unknown]
  - Eye swelling [Unknown]

NARRATIVE: CASE EVENT DATE: 20210628
